FAERS Safety Report 6177988-4 (Version None)
Quarter: 2009Q2

REPORT INFORMATION
  Report Type: 
  Country: None (occurrence: None)
  Receive Date: 20090501
  Receipt Date: 20090501
  Transmission Date: 20091009
  Serious: Yes (Hospitalization)
  Sender: FDA-Public Use
  Company Number: None

PATIENT
  Age: 46 Year
  Sex: Female
  Weight: 48 kg

DRUGS (2)
  1. TARCEVA [Suspect]
     Indication: OVARIAN CANCER
     Dosage: 105 MG, DAY 1,2,15,16IV
     Route: 042
     Dates: start: 20090122, end: 20090415
  2. VIDAZA [Suspect]
     Indication: OVARIAN CANCER
     Dosage: 150 MG QD PO
     Route: 048
     Dates: start: 20090122, end: 20090403

REACTIONS (4)
  - ABDOMINAL PAIN UPPER [None]
  - ASCITES [None]
  - BACK PAIN [None]
  - DISEASE PROGRESSION [None]
